FAERS Safety Report 14329656 (Version 1)
Quarter: 2017Q4

REPORT INFORMATION
  Report Type: Spontaneous
  Country: PL (occurrence: PL)
  Receive Date: 20171227
  Receipt Date: 20171227
  Transmission Date: 20180321
  Serious: Yes (Death)
  Sender: FDA-Public Use
  Company Number: PL-TAIHO ONCOLOGY INC-JPTT171392

PATIENT
  Age: 82 Year
  Sex: Male

DRUGS (1)
  1. LONSURF [Suspect]
     Active Substance: TIPIRACIL HYDROCHLORIDE\TRIFLURIDINE
     Indication: COLORECTAL CANCER METASTATIC
     Dosage: UNK MG (UNK MG/M2), FOR 5 DAYS TREATMENT WITH 2 DAYS OF BREAK REPETITIVELY
     Route: 048
     Dates: start: 201708, end: 20171021

REACTIONS (4)
  - Death [Fatal]
  - Prescribed overdose [Unknown]
  - Asthenia [Not Recovered/Not Resolved]
  - Drug prescribing error [Unknown]

NARRATIVE: CASE EVENT DATE: 2017
